FAERS Safety Report 14994685 (Version 2)
Quarter: 2018Q2

REPORT INFORMATION
  Report Type: Spontaneous
  Country: DE (occurrence: DE)
  Receive Date: 20180611
  Receipt Date: 20180626
  Transmission Date: 20180711
  Serious: Yes (Hospitalization)
  Sender: FDA-Public Use
  Company Number: PHHY2018DE018843

PATIENT
  Age: 67 Year
  Sex: Female
  Weight: 50 kg

DRUGS (23)
  1. CAPECITABINE. [Suspect]
     Active Substance: CAPECITABINE
     Dosage: 1900 MG/M2, UNK
     Route: 065
     Dates: start: 20120103
  2. BEVACIZUMAB. [Suspect]
     Active Substance: BEVACIZUMAB
     Dosage: 750 MG, UNK
     Route: 042
     Dates: start: 20120124
  3. PACLITAXEL. [Suspect]
     Active Substance: PACLITAXEL
     Dosage: 129 MG, UNK
     Route: 042
     Dates: start: 20120807
  4. AVASTIN [Suspect]
     Active Substance: BEVACIZUMAB
     Dosage: 675 MG, Q3W
     Route: 042
     Dates: start: 20120306, end: 20120417
  5. AVASTIN [Suspect]
     Active Substance: BEVACIZUMAB
     Dosage: 462.5 MG, Q2W
     Route: 042
     Dates: start: 20120605, end: 20120703
  6. AVASTIN [Suspect]
     Active Substance: BEVACIZUMAB
     Dosage: 425 MG, Q2W
     Route: 042
     Dates: start: 20120807
  7. PACLITAXEL. [Suspect]
     Active Substance: PACLITAXEL
     Indication: BREAST CANCER
     Dosage: 129 MG, UNK
     Route: 042
     Dates: start: 20120619
  8. PACLITAXEL. [Suspect]
     Active Substance: PACLITAXEL
     Dosage: 129 MG, UNK
     Route: 042
     Dates: start: 20120703
  9. PACLITAXEL. [Suspect]
     Active Substance: PACLITAXEL
     Dosage: 129 MG, UNK
     Route: 042
     Dates: start: 20120828
  10. BEVACIZUMAB. [Suspect]
     Active Substance: BEVACIZUMAB
     Indication: BREAST CANCER METASTATIC
     Dosage: 750 MG, UNK
     Route: 042
     Dates: start: 20111213, end: 20120214
  11. BEVACIZUMAB. [Suspect]
     Active Substance: BEVACIZUMAB
     Dosage: 462.5 MG, UNK
     Route: 042
     Dates: start: 20120605, end: 20120703
  12. PACLITAXEL. [Suspect]
     Active Substance: PACLITAXEL
     Dosage: 129 MG, UNK
     Route: 042
     Dates: start: 20120717
  13. XELODA [Suspect]
     Active Substance: CAPECITABINE
     Indication: BREAST CANCER
     Dosage: 2500 MG/M2, UNK
     Route: 065
     Dates: start: 20111122, end: 20120306
  14. BEVACIZUMAB. [Suspect]
     Active Substance: BEVACIZUMAB
     Dosage: 675 MG, UNK
     Route: 042
     Dates: start: 20120306, end: 20120417
  15. CAPECITABINE. [Suspect]
     Active Substance: CAPECITABINE
     Indication: PRODUCT USED FOR UNKNOWN INDICATION
     Dosage: 2500 MG/M2, UNK
     Route: 065
     Dates: start: 20111122, end: 20120306
  16. AVASTIN [Suspect]
     Active Substance: BEVACIZUMAB
     Indication: BREAST CANCER METASTATIC
     Dosage: 750 MG, Q3W
     Route: 042
     Dates: start: 20111213, end: 20120214
  17. CAPECITABINE. [Suspect]
     Active Substance: CAPECITABINE
     Dosage: 1900 MG/M2, UNK
     Route: 065
     Dates: start: 20111213, end: 20121124
  18. HCTZ [Concomitant]
     Active Substance: HYDROCHLOROTHIAZIDE
     Indication: PRODUCT USED FOR UNKNOWN INDICATION
     Dosage: 1 OT, QD
     Route: 065
  19. TRIAMTEREN [Concomitant]
     Active Substance: TRIAMTERENE
     Indication: PRODUCT USED FOR UNKNOWN INDICATION
     Dosage: UNK
     Route: 065
  20. BEVACIZUMAB. [Suspect]
     Active Substance: BEVACIZUMAB
     Dosage: 425 MG, Q2W
     Route: 042
     Dates: start: 20120807
  21. ENALAPRIL [Concomitant]
     Active Substance: ENALAPRIL
     Indication: PRODUCT USED FOR UNKNOWN INDICATION
     Dosage: 1 OT, QD
     Route: 065
  22. PANTOPRAZOL [Concomitant]
     Active Substance: PANTOPRAZOLE SODIUM
     Indication: DYSPEPSIA
     Dosage: UNK
     Route: 065
  23. HYDROCHLOROTHIAZID [Concomitant]
     Active Substance: HYDROCHLOROTHIAZIDE
     Indication: PRODUCT USED FOR UNKNOWN INDICATION
     Dosage: 1 OT, QD
     Route: 065

REACTIONS (8)
  - Blood pressure increased [Unknown]
  - Musculoskeletal chest pain [Recovered/Resolved]
  - Epistaxis [Recovered/Resolved]
  - Dry mouth [Recovered/Resolved]
  - Decreased appetite [Recovered/Resolved]
  - Haemoglobin decreased [Recovered/Resolved]
  - Dysgeusia [Recovered/Resolved]
  - Chest pain [Recovered/Resolved]

NARRATIVE: CASE EVENT DATE: 20120124
